FAERS Safety Report 24200963 (Version 1)
Quarter: 2024Q3

REPORT INFORMATION
  Report Type: Spontaneous
  Country: US (occurrence: None)
  Receive Date: 20240810
  Receipt Date: 20240810
  Transmission Date: 20241016
  Serious: No
  Sender: Public
  Company Number: None

PATIENT
  Age: 52 Year
  Sex: Female
  Weight: 72 kg

DRUGS (6)
  1. DOXYCYCLINE HYCLATE [Suspect]
     Active Substance: DOXYCYCLINE HYCLATE
     Indication: Skin infection
     Dosage: 1 TABLET TWICE A DAY ORAL
     Route: 048
  2. METFORMIN [Concomitant]
     Active Substance: METFORMIN HYDROCHLORIDE
  3. PRISTIQ EXTENDED-RELEASE [Concomitant]
     Active Substance: DESVENLAFAXINE SUCCINATE
  4. GUANFACINE [Concomitant]
     Active Substance: GUANFACINE
  5. ATORVASTATIN [Concomitant]
     Active Substance: ATORVASTATIN
  6. IBUPROFWE [Concomitant]

REACTIONS (3)
  - Anxiety [None]
  - Agitation [None]
  - Feeling abnormal [None]

NARRATIVE: CASE EVENT DATE: 20240809
